FAERS Safety Report 4464969-1 (Version None)
Quarter: 2004Q4

REPORT INFORMATION
  Report Type: 
  Country: None (occurrence: None)
  Receive Date: 20041004
  Receipt Date: 20040428
  Transmission Date: 20050328
  Serious: Yes (Other)
  Sender: FDA-Public Use
  Company Number: 365981

PATIENT
  Sex: Female

DRUGS (1)
  1. COREG [Suspect]
     Route: 048

REACTIONS (1)
  - PULMONARY OEDEMA [None]
